FAERS Safety Report 7202941-9 (Version None)
Quarter: 2010Q4

REPORT INFORMATION
  Report Type: 
  Country: None (occurrence: None)
  Receive Date: 20101229
  Receipt Date: 20101227
  Transmission Date: 20110411
  Serious: Yes (Death)
  Sender: FDA-Public Use
  Company Number: PHHY2010JP85577

PATIENT
  Age: 16 Year
  Sex: Female

DRUGS (1)
  1. VOLTAREN [Suspect]
     Indication: PYREXIA
     Dosage: UNK
     Route: 054

REACTIONS (8)
  - ADRENAL INSUFFICIENCY [None]
  - ERYTHEMA [None]
  - GASTROINTESTINAL EROSION [None]
  - GASTROINTESTINAL HAEMORRHAGE [None]
  - HEPATIC FAILURE [None]
  - HYPERBILIRUBINAEMIA [None]
  - SEPSIS [None]
  - TOXIC EPIDERMAL NECROLYSIS [None]
